FAERS Safety Report 9271105 (Version 1)
Quarter: 2013Q2

REPORT INFORMATION
  Report Type: Report from Study
  Country: US (occurrence: US)
  Receive Date: 20130506
  Receipt Date: 20130506
  Transmission Date: 20140414
  Serious: Yes (Other)
  Sender: FDA-Public Use
  Company Number: PHEH2013US009561

PATIENT
  Sex: Female
  Weight: 47.62 kg

DRUGS (4)
  1. AFINITOR [Suspect]
     Indication: ASTROCYTOMA
     Dosage: 5 MG, QD
     Route: 048
     Dates: end: 20130426
  2. DEPAKOTE ER [Concomitant]
     Dosage: 500 MG, BID
  3. DEPAKOTE [Concomitant]
     Dosage: 125 MG, BID
  4. LAMICTAL [Concomitant]
     Indication: CONVULSION

REACTIONS (1)
  - Abnormal behaviour [Unknown]
